FAERS Safety Report 25531527 (Version 1)
Quarter: 2025Q3

REPORT INFORMATION
  Report Type: Other
  Country: CA (occurrence: CA)
  Receive Date: 20250709
  Receipt Date: 20250709
  Transmission Date: 20251020
  Serious: Yes (Other)
  Sender: APOTEX
  Company Number: CA-APOTEX-2024AP017590

PATIENT
  Sex: Male

DRUGS (7)
  1. ELTROMBOPAG [Suspect]
     Active Substance: ELTROMBOPAG
     Indication: Immune thrombocytopenia
     Dosage: 50 MILLIGRAM, QD
     Route: 048
     Dates: start: 20240924, end: 20241102
  2. ELTROMBOPAG [Suspect]
     Active Substance: ELTROMBOPAG
     Dosage: 50 MILLIGRAM, QD
     Route: 048
  3. ELTROMBOPAG [Suspect]
     Active Substance: ELTROMBOPAG
     Dosage: 50 MILLIGRAM, QD (INTERMITTENTLY/ AS NEEDED)
     Route: 048
  4. PREDNISONE [Suspect]
     Active Substance: PREDNISONE
     Indication: Product used for unknown indication
     Route: 065
  5. DEXAMETHASONE [Suspect]
     Active Substance: DEXAMETHASONE
     Indication: Product used for unknown indication
     Route: 065
  6. HUMAN IMMUNOGLOBULIN G [Suspect]
     Active Substance: HUMAN IMMUNOGLOBULIN G
     Indication: Product used for unknown indication
     Route: 065
  7. VENTOLIN [Concomitant]
     Active Substance: ALBUTEROL SULFATE
     Indication: Product used for unknown indication
     Route: 065

REACTIONS (5)
  - Platelet count decreased [Recovered/Resolved]
  - Condition aggravated [Unknown]
  - Off label use [Unknown]
  - Thrombocytosis [Recovering/Resolving]
  - Drug ineffective [Unknown]

NARRATIVE: CASE EVENT DATE: 20240101
